FAERS Safety Report 8171374-3 (Version None)
Quarter: 2012Q1

REPORT INFORMATION
  Report Type: 
  Country: None (occurrence: None)
  Receive Date: 20120228
  Receipt Date: 20120213
  Transmission Date: 20120608
  Serious: Yes (Death, Hospitalization, Other)
  Sender: FDA-Public Use
  Company Number: US-WATSON-2012-03055

PATIENT
  Age: 14 Year
  Sex: Male

DRUGS (2)
  1. PREDNISONE TAB [Suspect]
     Indication: ACUTE LYMPHOCYTIC LEUKAEMIA
  2. METHOTREXATE [Suspect]
     Indication: ACUTE LYMPHOCYTIC LEUKAEMIA

REACTIONS (14)
  - NEUTROPENIA [None]
  - ANAEMIA [None]
  - HEPATORENAL SYNDROME [None]
  - EJECTION FRACTION DECREASED [None]
  - PNEUMONIA [None]
  - BACTERAEMIA [None]
  - COAGULOPATHY [None]
  - SEPSIS [None]
  - CANDIDA PNEUMONIA [None]
  - RESPIRATORY FAILURE [None]
  - NEUTROPENIC COLITIS [None]
  - THROMBOCYTOPENIA [None]
  - ENCEPHALOPATHY [None]
  - HEPATIC FAILURE [None]
